FAERS Safety Report 4784765-5 (Version None)
Quarter: 2005Q3

REPORT INFORMATION
  Report Type: 
  Country: None (occurrence: None)
  Receive Date: 20050929
  Receipt Date: 20050929
  Transmission Date: 20060218
  Serious: Yes (Other)
  Sender: FDA-Public Use
  Company Number: None

PATIENT
  Age: 35 Year
  Sex: Female
  Weight: 113.3993 kg

DRUGS (2)
  1. ADVAIR DISKUS 500/50 [Suspect]
     Indication: ASTHMA
     Dosage: ONE PUFF TWICE DAILY PO
     Route: 048
     Dates: start: 20030910, end: 20050928
  2. ADVAIR DISKUS 500/50 [Suspect]
     Indication: PROPHYLAXIS
     Dosage: ONE PUFF TWICE DAILY PO
     Route: 048
     Dates: start: 20030910, end: 20050928

REACTIONS (20)
  - ABDOMINAL DISTENSION [None]
  - ABDOMINAL PAIN [None]
  - DEPRESSION [None]
  - DERMATITIS [None]
  - DRY THROAT [None]
  - DYSPHONIA [None]
  - FATIGUE [None]
  - FLUSHING [None]
  - FUNGAL INFECTION [None]
  - HEADACHE [None]
  - MALAISE [None]
  - MENSTRUATION IRREGULAR [None]
  - MUSCULOSKELETAL STIFFNESS [None]
  - OROPHARYNGITIS FUNGAL [None]
  - PAIN [None]
  - PHARMACEUTICAL PRODUCT COMPLAINT [None]
  - PHARYNGOLARYNGEAL PAIN [None]
  - POISONING [None]
  - VISION BLURRED [None]
  - WEIGHT INCREASED [None]
